FAERS Safety Report 11243866 (Version 1)
Quarter: 2015Q3

REPORT INFORMATION
  Report Type: Spontaneous
  Country: US (occurrence: US)
  Receive Date: 20150707
  Receipt Date: 20150707
  Transmission Date: 20151125
  Serious: No
  Sender: FDA-Public Use
  Company Number: US-009507513-1506USA011520

PATIENT
  Age: 50 Year
  Sex: Male

DRUGS (1)
  1. INTRON A [Suspect]
     Active Substance: INTERFERON ALFA-2B
     Indication: MALIGNANT MELANOMA
     Dosage: UNK
     Dates: start: 20150511

REACTIONS (4)
  - Headache [Unknown]
  - Myalgia [Unknown]
  - Influenza like illness [Unknown]
  - Bone pain [Unknown]

NARRATIVE: CASE EVENT DATE: 201505
